FAERS Safety Report 6360583-1 (Version None)
Quarter: 2009Q3

REPORT INFORMATION
  Report Type: 
  Country: None (occurrence: None)
  Receive Date: 20090915
  Receipt Date: 20090908
  Transmission Date: 20100115
  Serious: Yes (Hospitalization)
  Sender: FDA-Public Use
  Company Number: 2009AL005884

PATIENT
  Age: 16 Year
  Sex: Male

DRUGS (1)
  1. IBUPROFEN [Suspect]
     Indication: MUSCULOSKELETAL PAIN
     Dosage: 1.2 GM, QD;

REACTIONS (14)
  - ALANINE AMINOTRANSFERASE INCREASED [None]
  - ASPARTATE AMINOTRANSFERASE INCREASED [None]
  - BILIARY TRACT DISORDER [None]
  - BLOOD ALKALINE PHOSPHATASE INCREASED [None]
  - CERULOPLASMIN INCREASED [None]
  - CHOLESTASIS [None]
  - DRUG EFFECT DECREASED [None]
  - GALLBLADDER DISORDER [None]
  - INTERNATIONAL NORMALISED RATIO INCREASED [None]
  - LIVER DISORDER [None]
  - LIVER INJURY [None]
  - OCULAR ICTERUS [None]
  - SMOOTH MUSCLE ANTIBODY POSITIVE [None]
  - THERAPEUTIC RESPONSE DECREASED [None]
